FAERS Safety Report 9050317 (Version 2)
Quarter: 2013Q1

REPORT INFORMATION
  Report Type: Spontaneous
  Country: AR (occurrence: AR)
  Receive Date: 20130205
  Receipt Date: 20130222
  Transmission Date: 20140127
  Serious: Yes (Hospitalization)
  Sender: FDA-Public Use
  Company Number: PHHY2013AR010801

PATIENT
  Age: 57 Year
  Sex: Female

DRUGS (1)
  1. EXFORGE [Suspect]
     Indication: HYPERTENSION
     Dosage: 2 DF, (320 MG VALS AND 10 MG AMLO), DAILY
     Route: 048
     Dates: end: 20130124

REACTIONS (8)
  - Arterial occlusive disease [Recovering/Resolving]
  - Angina pectoris [Recovering/Resolving]
  - Hypertension [Recovering/Resolving]
  - Dizziness [Recovering/Resolving]
  - Arrhythmia [Recovering/Resolving]
  - Tachycardia [Recovering/Resolving]
  - Heart rate decreased [Recovering/Resolving]
  - Chest pain [Unknown]
